FAERS Safety Report 11869343 (Version 1)
Quarter: 2015Q4

REPORT INFORMATION
  Report Type: Spontaneous
  Country: US (occurrence: US)
  Receive Date: 20151226
  Receipt Date: 20151226
  Transmission Date: 20160305
  Serious: Yes (Other)
  Sender: FDA-Public Use
  Company Number: US-BRISTOL-MYERS SQUIBB COMPANY-BMS-2015-090377

PATIENT

DRUGS (1)
  1. OPDIVO [Suspect]
     Active Substance: NIVOLUMAB
     Indication: MALIGNANT MELANOMA
     Dosage: UNK
     Route: 065
     Dates: start: 201503

REACTIONS (6)
  - Confusional state [Unknown]
  - Autoimmune hepatitis [Unknown]
  - Failure to thrive [Unknown]
  - Primary hypothyroidism [Unknown]
  - Hypophysitis [Unknown]
  - Adrenal insufficiency [Unknown]
